FAERS Safety Report 7915027-2 (Version None)
Quarter: 2011Q4

REPORT INFORMATION
  Report Type: 
  Country: None (occurrence: None)
  Receive Date: 20111115
  Receipt Date: 20101103
  Transmission Date: 20120403
  Serious: No
  Sender: FDA-Public Use
  Company Number: US-AMGEN-KDL236803

PATIENT
  Age: 39 Year
  Sex: Female

DRUGS (3)
  1. ENBREL [Suspect]
     Dosage: 25 MG, QWK
     Dates: start: 20080101
  2. ENBREL [Suspect]
     Dosage: 50 MG, QWK
  3. ENBREL [Suspect]
     Indication: RHEUMATOID ARTHRITIS
     Dosage: 50 MG, QWK
     Route: 058
     Dates: start: 20070101

REACTIONS (17)
  - WEIGHT INCREASED [None]
  - HYPOAESTHESIA [None]
  - THERAPEUTIC RESPONSE DECREASED [None]
  - HYPERPHAGIA [None]
  - PAIN IN EXTREMITY [None]
  - OEDEMA PERIPHERAL [None]
  - BLISTER [None]
  - FINGER DEFORMITY [None]
  - INJECTION SITE SWELLING [None]
  - INJECTION SITE ERYTHEMA [None]
  - URTICARIA [None]
  - PARAESTHESIA [None]
  - INJECTION SITE PAIN [None]
  - SKIN MASS [None]
  - ABDOMINAL DISCOMFORT [None]
  - HEADACHE [None]
  - INJECTION SITE PRURITUS [None]
